FAERS Safety Report 13225885 (Version 2)
Quarter: 2017Q1

REPORT INFORMATION
  Report Type: Spontaneous
  Country: IT (occurrence: IT)
  Receive Date: 20170213
  Receipt Date: 20170217
  Transmission Date: 20170428
  Serious: Yes (Hospitalization)
  Sender: FDA-Public Use
  Company Number: IT-ASTRAZENECA-2017SE14777

PATIENT
  Age: 14370 Day
  Sex: Male

DRUGS (3)
  1. SEROQUEL XR [Suspect]
     Active Substance: QUETIAPINE FUMARATE
     Indication: DRUG ABUSE
     Dosage: 400.0MG UNKNOWN
     Route: 048
     Dates: start: 20170126, end: 20170126
  2. FLUMAZENIL. [Concomitant]
     Active Substance: FLUMAZENIL
  3. EN [Suspect]
     Active Substance: DELORAZEPAM
     Indication: DRUG ABUSE
     Dosage: 4.0MG UNKNOWN
     Route: 048
     Dates: start: 20170126, end: 20170126

REACTIONS (2)
  - Arrhythmia [Unknown]
  - Toxicity to various agents [Recovered/Resolved]

NARRATIVE: CASE EVENT DATE: 20170127
